FAERS Safety Report 11981870 (Version 1)
Quarter: 2016Q1

REPORT INFORMATION
  Report Type: Spontaneous
  Country: US (occurrence: None)
  Receive Date: 20160129
  Receipt Date: 20160129
  Transmission Date: 20160526
  Serious: Yes (Hospitalization)
  Sender: FDA-Public Use
  Company Number: None

PATIENT
  Age: 81 Year
  Sex: Male
  Weight: 71.4 kg

DRUGS (13)
  1. NOVOLOG [Suspect]
     Active Substance: INSULIN ASPART
     Indication: DIABETES MELLITUS
  2. VITAMIN C [Concomitant]
     Active Substance: ASCORBIC ACID
  3. LASIX [Concomitant]
     Active Substance: FUROSEMIDE
  4. ZOCOR [Concomitant]
     Active Substance: SIMVASTATIN
  5. ECOTRIN [Concomitant]
     Active Substance: ASPIRIN
  6. LEVEMIR [Suspect]
     Active Substance: INSULIN DETEMIR
     Indication: DIABETES MELLITUS
     Dosage: 10UNITS, NIGHTLY, SQ,
     Route: 058
  7. APAP [Concomitant]
     Active Substance: ACETAMINOPHEN
  8. GLUCERNA [Concomitant]
     Active Substance: AMINO ACIDS\DEXTROSE\ELECTROLYTES NOS\SOYBEAN OIL\VITAMINS
  9. XALATAN [Concomitant]
     Active Substance: LATANOPROST
  10. SEROQUEL [Concomitant]
     Active Substance: QUETIAPINE FUMARATE
  11. COREG [Concomitant]
     Active Substance: CARVEDILOL
  12. GLUCAGON. [Concomitant]
     Active Substance: GLUCAGON
  13. THERAGRAN [Concomitant]
     Active Substance: VITAMINS

REACTIONS (3)
  - Hypothermia [None]
  - Hypoglycaemia [None]
  - Unresponsive to stimuli [None]

NARRATIVE: CASE EVENT DATE: 20151202
